FAERS Safety Report 10039822 (Version 2)
Quarter: 2014Q1

REPORT INFORMATION
  Report Type: Spontaneous
  Country: BE (occurrence: BE)
  Receive Date: 20140326
  Receipt Date: 20140331
  Transmission Date: 20141002
  Serious: Yes (Death, Hospitalization)
  Sender: FDA-Public Use
  Company Number: BE-JNJFOC-20140309230

PATIENT
  Age: 45 Year
  Sex: 0

DRUGS (9)
  1. XEPLION [Suspect]
     Indication: PRODUCT USED FOR UNKNOWN INDICATION
     Route: 030
  2. PARAFON FORTE [Concomitant]
     Route: 065
  3. ACCUPRIL [Concomitant]
     Route: 066
  4. CARDIO ASPIRIN [Concomitant]
     Route: 065
  5. CRESTOR [Concomitant]
     Route: 065
  6. PANTOPRAZOL [Concomitant]
     Route: 065
  7. TEMESTA [Concomitant]
     Dosage: 1/2 IF NEEDED.
     Route: 065
  8. LOSARTAN [Concomitant]
     Route: 065
  9. NOVOMIX [Concomitant]
     Route: 065

REACTIONS (3)
  - Acute hepatic failure [Fatal]
  - Hepatic cirrhosis [Unknown]
  - Somnolence [Unknown]
